FAERS Safety Report 8107233-1 (Version None)
Quarter: 2012Q1

REPORT INFORMATION
  Report Type: 
  Country: None (occurrence: None)
  Receive Date: 20120202
  Receipt Date: 20120120
  Transmission Date: 20120608
  Serious: Yes (Hospitalization, Other)
  Sender: FDA-Public Use
  Company Number: JP-SHIRE-ALL1-2012-00295

PATIENT
  Age: 74 Year
  Sex: Male

DRUGS (9)
  1. ARGAMATE [Concomitant]
     Indication: HYPERPHOSPHATAEMIA
     Dosage: 50 MG, UNKNOWN
     Route: 048
  2. HARNAL D [Concomitant]
     Indication: BENIGN PROSTATIC HYPERPLASIA
     Dosage: 0.2 MG, UNKNOWN
     Route: 048
  3. RENAGEL [Concomitant]
     Indication: HYPERPHOSPHATAEMIA
     Dosage: 750 MG, UNKNOWN
     Route: 048
  4. RISEDRONATE SODIUM [Concomitant]
     Indication: OSTEOPOROSIS
     Dosage: UNK, UNKNOWN
     Route: 048
  5. FOSRENOL [Suspect]
     Indication: HYPERPHOSPHATAEMIA
     Dosage: 1500 MG TOTAL DAILY DOSE, UNKNOWN
     Route: 048
  6. RABEPRAZOLE SODIUM [Concomitant]
     Indication: GASTRIC ULCER
     Dosage: 10 MG, UNKNOWN
     Route: 048
  7. SIGMART [Concomitant]
     Indication: ANGINA PECTORIS
     Dosage: 10 MG, UNKNOWN
     Route: 048
  8. COLONEL [Concomitant]
     Indication: BOWEL MOVEMENT IRREGULARITY
     Dosage: 1.8 MG, UNKNOWN
     Route: 048
  9. CALCIUM CARBONATE [Concomitant]
     Indication: HYPERPHOSPHATAEMIA
     Dosage: 3000 MG, UNKNOWN
     Route: 048

REACTIONS (7)
  - ENDOCARDITIS [None]
  - DEMENTIA [None]
  - WRONG TECHNIQUE IN DRUG USAGE PROCESS [None]
  - CHEST DISCOMFORT [None]
  - PYREXIA [None]
  - FOREIGN BODY [None]
  - CEREBRAL INFARCTION [None]
